FAERS Safety Report 16412494 (Version 1)
Quarter: 2019Q2

REPORT INFORMATION
  Report Type: Other
  Country: None (occurrence: RO)
  Receive Date: 20190610
  Receipt Date: 20190610
  Transmission Date: 20190711
  Serious: Yes (Hospitalization)
  Sender: FDA-Public Use
  Company Number: RO-LABORATOIRE HRA PHARMA-2068050

PATIENT
  Age: 54 Year
  Sex: Male

DRUGS (15)
  1. ALENDRONATE SODIUM. [Concomitant]
     Active Substance: ALENDRONATE SODIUM
     Dates: start: 20170328
  2. ESOMEPRAZOLE MAGNESIUM. [Concomitant]
     Active Substance: ESOMEPRAZOLE MAGNESIUM
     Dates: start: 20190515, end: 20190519
  3. METFORMIN HYDROCHLORIDE. [Concomitant]
     Active Substance: METFORMIN HYDROCHLORIDE
     Dates: start: 20161122
  4. TAMSULOSIN HYDROCHLORIDE. [Concomitant]
     Active Substance: TAMSULOSIN HYDROCHLORIDE
     Dates: start: 20170328
  5. NAPROXEN. [Concomitant]
     Active Substance: NAPROXEN
     Dates: start: 20190515, end: 20190519
  6. CLOBETASOL PROPIONATE. [Concomitant]
     Active Substance: CLOBETASOL PROPIONATE
     Dates: start: 20190426, end: 20190502
  7. INDAPAMIDE. [Concomitant]
     Active Substance: INDAPAMIDE
     Dates: start: 20190325
  8. PERINDOPRIL ERBUMINE. [Concomitant]
     Active Substance: PERINDOPRIL ERBUMINE
     Dates: start: 20190325
  9. CICLOPIROX. [Concomitant]
     Active Substance: CICLOPIROX
     Dates: start: 20190423
  10. AMLODIPINE [Concomitant]
     Active Substance: AMLODIPINE BESYLATE
     Dates: start: 20190325
  11. ROSUVASTATIN. [Concomitant]
     Active Substance: ROSUVASTATIN
     Dates: start: 20190325
  12. ISOCONAZOLE [Concomitant]
     Active Substance: ISOCONAZOLE
     Dates: start: 20190426, end: 20190526
  13. METOPIRONE [Suspect]
     Active Substance: METYRAPONE
     Indication: CUSHING^S SYNDROME
     Route: 048
     Dates: start: 20190402, end: 20190525
  14. METOPROLOL. [Concomitant]
     Active Substance: METOPROLOL
     Dates: start: 20121113
  15. SILYMARIN MARIANUM [Concomitant]
     Dates: start: 20190411

REACTIONS (1)
  - Hypokalaemia [Recovered/Resolved]

NARRATIVE: CASE EVENT DATE: 20190522
